FAERS Safety Report 5067170-6 (Version None)
Quarter: 2006Q3

REPORT INFORMATION
  Report Type: 
  Country: None (occurrence: None)
  Receive Date: 20060726
  Receipt Date: 20060717
  Transmission Date: 20061208
  Serious: Yes (Death, Other)
  Sender: FDA-Public Use
  Company Number: 2006-07-0253

PATIENT
  Sex: Female

DRUGS (4)
  1. PEG-INTRON [Suspect]
     Indication: HEPATITIS C
     Dosage: SUBCUTANEOUS; 80 MCG QWK SUBCUTANEOUS
     Route: 058
     Dates: start: 20020101, end: 20020101
  2. PEG-INTRON [Suspect]
     Indication: HEPATITIS C
     Dosage: SUBCUTANEOUS; 80 MCG QWK SUBCUTANEOUS
     Route: 058
     Dates: start: 20050901, end: 20060324
  3. REBETOL [Suspect]
     Indication: HEPATITIS C
     Dosage: ORAL; 800 MG QD ORAL
     Route: 048
     Dates: start: 20020101, end: 20020101
  4. REBETOL [Suspect]
     Indication: HEPATITIS C
     Dosage: ORAL; 800 MG QD ORAL
     Route: 048
     Dates: start: 20050901, end: 20060324

REACTIONS (5)
  - BREAST CANCER FEMALE [None]
  - CONVERSION DISORDER [None]
  - DRUG INEFFECTIVE [None]
  - FATIGUE [None]
  - HOMICIDE [None]
